FAERS Safety Report 7319658-2 (Version None)
Quarter: 2011Q1

REPORT INFORMATION
  Report Type: 
  Country: None (occurrence: None)
  Receive Date: 20110228
  Receipt Date: 20100707
  Transmission Date: 20110831
  Serious: No
  Sender: FDA-Public Use
  Company Number: A0868944A

PATIENT
  Age: 69 Year
  Sex: Female

DRUGS (3)
  1. LAMICTAL [Suspect]
     Indication: BIPOLAR DISORDER
     Dosage: 100MG PER DAY
     Route: 048
     Dates: start: 20100524, end: 20100627
  2. LAMICTAL [Suspect]
     Dosage: 100MG PER DAY
     Route: 048
     Dates: start: 20100628
  3. LITHIUM [Concomitant]

REACTIONS (4)
  - FREQUENT BOWEL MOVEMENTS [None]
  - FLATULENCE [None]
  - INSOMNIA [None]
  - MUSCLE SPASMS [None]
